FAERS Safety Report 18116292 (Version 1)
Quarter: 2020Q3

REPORT INFORMATION
  Report Type: Spontaneous
  Country: US (occurrence: US)
  Receive Date: 20200805
  Receipt Date: 20200805
  Transmission Date: 20201103
  Serious: Yes (Hospitalization, Disabling, Other)
  Sender: FDA-Public Use
  Company Number: US-PURDUE-USA-2020-0160003

PATIENT
  Sex: Male

DRUGS (5)
  1. MS CONTIN [Suspect]
     Active Substance: MORPHINE SULFATE
     Indication: NERVE INJURY
     Dosage: UNK
     Route: 048
  2. OXYCONTIN [Suspect]
     Active Substance: OXYCODONE HYDROCHLORIDE
     Indication: NERVE INJURY
     Dosage: UNK
     Route: 048
  3. OXYCODONE/ ACETAMINOPHEN TABLETS [Suspect]
     Active Substance: ACETAMINOPHEN\OXYCODONE HYDROCHLORIDE
     Indication: NERVE INJURY
     Dosage: UNK
     Route: 048
  4. TRAMADOLE [Suspect]
     Active Substance: TRAMADOL HYDROCHLORIDE
     Indication: NERVE INJURY
     Route: 065
  5. MORPHINE SULFATE EXTENDED?RELEASE TABLETS (RHODES 74?769, 74?862) [Suspect]
     Active Substance: MORPHINE SULFATE
     Indication: NERVE INJURY
     Dosage: UNK
     Route: 048

REACTIONS (13)
  - Depression [Unknown]
  - Insomnia [Unknown]
  - Musculoskeletal disorder [Unknown]
  - Impaired work ability [Unknown]
  - Suicidal ideation [Unknown]
  - Organ failure [Unknown]
  - Hospitalisation [Unknown]
  - Drug dependence [Unknown]
  - Unevaluable event [Unknown]
  - Overdose [Unknown]
  - Loss of personal independence in daily activities [Unknown]
  - Pain [Unknown]
  - Disability [Unknown]
